FAERS Safety Report 7537154-4 (Version None)
Quarter: 2011Q2

REPORT INFORMATION
  Report Type: 
  Country: None (occurrence: None)
  Receive Date: 20110609
  Receipt Date: 20110606
  Transmission Date: 20111010
  Serious: Yes (Death, Hospitalization)
  Sender: FDA-Public Use
  Company Number: PHFR2011GB02968

PATIENT
  Sex: Male

DRUGS (1)
  1. CLOZAPINE [Suspect]
     Indication: SCHIZOPHRENIA
     Route: 048
     Dates: start: 20100324, end: 20110509

REACTIONS (5)
  - MYOCARDITIS [None]
  - HEART RATE INCREASED [None]
  - CHEST PAIN [None]
  - DEATH [None]
  - TROPONIN T INCREASED [None]
